FAERS Safety Report 15003131 (Version 3)
Quarter: 2018Q3

REPORT INFORMATION
  Report Type: Spontaneous
  Country: US (occurrence: US)
  Receive Date: 20180612
  Receipt Date: 20180730
  Transmission Date: 20181010
  Serious: No
  Sender: FDA-Public Use
  Company Number: US-BRISTOL-MYERS SQUIBB COMPANY-BMS-2018-054275

PATIENT
  Age: 77 Year
  Sex: Female
  Weight: 56.69 kg

DRUGS (1)
  1. KENALOG?10 [Suspect]
     Active Substance: TRIAMCINOLONE ACETONIDE
     Indication: ALOPECIA
     Dosage: UNK
     Route: 065
     Dates: start: 20180410

REACTIONS (5)
  - Product use in unapproved indication [Unknown]
  - Pruritus [Unknown]
  - Skin indentation [Unknown]
  - Depression [Unknown]
  - Atrophy [Unknown]

NARRATIVE: CASE EVENT DATE: 20180722
